FAERS Safety Report 18606234 (Version 1)
Quarter: 2020Q4

REPORT INFORMATION
  Report Type: Spontaneous
  Country: DK (occurrence: DK)
  Receive Date: 20201211
  Receipt Date: 20201211
  Transmission Date: 20210114
  Serious: Yes (Hospitalization, Disabling)
  Sender: FDA-Public Use
  Company Number: DK-TEVA-2020-DK-1856456

PATIENT
  Age: 15 Year
  Sex: Male

DRUGS (2)
  1. PREDNISOLONE. [Suspect]
     Active Substance: PREDNISOLONE
     Indication: SYSTEMIC LUPUS ERYTHEMATOSUS
     Dosage: STRENGTH: VARYING.?DOSAGE: VARYING. FROM 10 MG TO MAX 80 MG A DAY
     Route: 048
     Dates: start: 20181112, end: 20191201
  2. SOLU-MEDROL [Concomitant]
     Active Substance: METHYLPREDNISOLONE SODIUM SUCCINATE
     Indication: SYSTEMIC LUPUS ERYTHEMATOSUS
     Dosage: STRENGHT: UNKNOWN.?DOSAGE: UKNOWN.
     Dates: start: 20181109

REACTIONS (4)
  - Groin pain [Unknown]
  - Arthralgia [Unknown]
  - Gait disturbance [Unknown]
  - Osteonecrosis [Recovered/Resolved with Sequelae]

NARRATIVE: CASE EVENT DATE: 201907
